FAERS Safety Report 7531415-0 (Version None)
Quarter: 2011Q2

REPORT INFORMATION
  Report Type: 
  Country: None (occurrence: None)
  Receive Date: 20110608
  Receipt Date: 20110530
  Transmission Date: 20111010
  Serious: Yes (Hospitalization)
  Sender: FDA-Public Use
  Company Number: FR-ASTRAZENECA-2011SE33348

PATIENT
  Age: 77 Year
  Sex: Male

DRUGS (12)
  1. KEPPRA [Concomitant]
     Dates: start: 20110211
  2. ASPIRIN [Concomitant]
  3. NEXIUM [Suspect]
     Route: 048
     Dates: start: 20110201, end: 20110331
  4. TRILEPTAL [Suspect]
     Indication: EPILEPSY
     Route: 048
     Dates: start: 20110201
  5. ATORVASTATIN [Concomitant]
  6. NEXIUM [Suspect]
     Route: 048
  7. KETOPROFEN [Suspect]
     Route: 048
     Dates: start: 20110201
  8. AMLODIPINE [Concomitant]
  9. ZANTAC [Concomitant]
  10. KETOPROFEN [Suspect]
     Indication: PAIN
     Route: 048
     Dates: start: 20110201
  11. KEPPRA [Concomitant]
     Indication: EPILEPSY
     Dates: start: 20100101
  12. FORLAX [Concomitant]

REACTIONS (2)
  - HYPONATRAEMIA [None]
  - HYPERKALAEMIA [None]
